FAERS Safety Report 9888672 (Version 1)
Quarter: 2014Q1

REPORT INFORMATION
  Report Type: Spontaneous
  Country: JP (occurrence: JP)
  Receive Date: 20140211
  Receipt Date: 20140211
  Transmission Date: 20141002
  Serious: Yes (Life-Threatening)
  Sender: FDA-Public Use
  Company Number: JP-SA-2014SA013486

PATIENT
  Age: 49 Year
  Sex: Male

DRUGS (6)
  1. ELPLAT [Suspect]
     Indication: COLON CANCER
     Route: 041
     Dates: start: 20130911, end: 20131217
  2. 5-FU [Suspect]
     Indication: COLON CANCER
     Route: 040
     Dates: start: 20130911, end: 20131119
  3. 5-FU [Suspect]
     Indication: COLON CANCER
     Route: 041
     Dates: start: 20130911, end: 20131217
  4. ERBITUX [Suspect]
     Indication: COLON CANCER
     Route: 041
     Dates: start: 20130911, end: 20130911
  5. ERBITUX [Suspect]
     Indication: COLON CANCER
     Route: 041
     Dates: start: 20131217
  6. ISOVORIN [Suspect]
     Indication: COLON CANCER
     Route: 041
     Dates: start: 20130911, end: 20131217

REACTIONS (3)
  - Rhabdomyolysis [Recovered/Resolved]
  - Hyperglycaemia [Recovered/Resolved]
  - Renal impairment [Recovered/Resolved]
